FAERS Safety Report 10482526 (Version 1)
Quarter: 2014Q3

REPORT INFORMATION
  Report Type: Spontaneous
  Country: DE (occurrence: DE)
  Receive Date: 20140929
  Receipt Date: 20140929
  Transmission Date: 20150326
  Serious: Yes (Hospitalization, Other)
  Sender: FDA-Public Use
  Company Number: DE-ACTAVIS-2014-21087

PATIENT
  Age: 35 Year
  Sex: Female

DRUGS (5)
  1. SAQUINAVIR [Concomitant]
     Active Substance: SAQUINAVIR
     Indication: HIV INFECTION
     Dosage: 1000 MG, BID
     Route: 065
     Dates: start: 200507
  2. TRIAMCINOLONE ACETONIDE (AMALLC) [Suspect]
     Active Substance: TRIAMCINOLONE ACETONIDE
     Indication: LUMBAR RADICULOPATHY
     Dosage: 20 MG, 1/WEEK
     Route: 008
     Dates: start: 201206
  3. RITONAVIR [Interacting]
     Active Substance: RITONAVIR
     Indication: HIV INFECTION
     Dosage: 100 MG, BID
     Route: 065
     Dates: start: 200507
  4. EMTRICITABINE W/TENOFOVIR [Concomitant]
     Active Substance: EMTRICITABINE\TENOFOVIR DISOPROXIL
     Indication: HIV INFECTION
     Dosage: 1 DF, DAILY
     Route: 065
     Dates: start: 200507
  5. BUCAIN [Concomitant]
     Indication: LUMBAR RADICULOPATHY
     Dosage: 3 ML, 1/WEEK
     Route: 008
     Dates: start: 201206

REACTIONS (3)
  - Cushing^s syndrome [Recovered/Resolved]
  - Drug interaction [Recovered/Resolved]
  - Drug level increased [Recovered/Resolved]
